FAERS Safety Report 7948946-1 (Version None)
Quarter: 2011Q4

REPORT INFORMATION
  Report Type: 
  Country: None (occurrence: None)
  Receive Date: 20111130
  Receipt Date: 20111122
  Transmission Date: 20120403
  Serious: Yes (Hospitalization)
  Sender: FDA-Public Use
  Company Number: US-GILEAD-2011-0047278

PATIENT
  Age: 38 Year
  Sex: Female

DRUGS (5)
  1. ELAVIL [Concomitant]
  2. LETAIRIS [Suspect]
     Indication: PRODUCT USED FOR UNKNOWN INDICATION
     Dosage: 10 MG, UNK
     Route: 048
  3. COUMADIN [Concomitant]
  4. REMODULIN [Concomitant]
  5. TYVASO [Concomitant]

REACTIONS (1)
  - CHEST PAIN [None]
